FAERS Safety Report 23565214 (Version 1)
Quarter: 2024Q1

REPORT INFORMATION
  Report Type: Spontaneous
  Country: US (occurrence: US)
  Receive Date: 20240226
  Receipt Date: 20240226
  Transmission Date: 20240410
  Serious: No
  Sender: FDA-Public Use
  Company Number: US-Dermavant-001002

PATIENT
  Age: 86 Year
  Sex: Male

DRUGS (5)
  1. TAPINAROF [Suspect]
     Active Substance: TAPINAROF
     Indication: Psoriasis
  2. SKYRIZI [Concomitant]
     Active Substance: RISANKIZUMAB-RZAA
     Indication: Psoriasis
     Dosage: INJECTION EVERY 12 WEEKS IN 2023
  3. Gaba Pentin [Concomitant]
     Indication: Neuralgia
  4. FLOMAX [Concomitant]
     Active Substance: TAMSULOSIN HYDROCHLORIDE
     Indication: Benign prostatic hyperplasia
  5. SIMVASTATIN [Concomitant]
     Active Substance: SIMVASTATIN
     Indication: High density lipoprotein

REACTIONS (2)
  - Application site erythema [Not Recovered/Not Resolved]
  - Dermatitis contact [Not Recovered/Not Resolved]
